FAERS Safety Report 9057929 (Version 1)
Quarter: 2013Q1

REPORT INFORMATION
  Report Type: Spontaneous
  Country: US (occurrence: None)
  Receive Date: 20130117
  Receipt Date: 20130117
  Transmission Date: 20140127
  Serious: Yes (Death)
  Sender: FDA-Public Use
  Company Number: AUR-APL-2013-00205

PATIENT
  Age: 36 Year
  Sex: Male

DRUGS (6)
  1. RISPERIDONE (RISPERIDONE) [Suspect]
     Indication: PRODUCT USED FOR UNKNOWN INDICATION
  2. ALPRAZOLAM (ALPRAZOLAM) [Suspect]
  3. MORPHINE [Suspect]
     Route: 048
  4. TRAMADOL (TRAMADOL) [Suspect]
  5. QUETIAPINE [Suspect]
  6. HYDROMORPHONE [Suspect]

REACTIONS (1)
  - Toxicity to various agents [None]
